FAERS Safety Report 15241196 (Version 1)
Quarter: 2018Q3

REPORT INFORMATION
  Report Type: Spontaneous
  Country: US (occurrence: US)
  Receive Date: 20180711
  Receipt Date: 20180711
  Transmission Date: 20181010
  Serious: No
  Sender: FDA-Public Use
  Company Number: None

PATIENT
  Age: 65 Year
  Sex: Male

DRUGS (1)
  1. EPCLUSA [Suspect]
     Active Substance: SOFOSBUVIR\VELPATASVIR

REACTIONS (7)
  - Blood iron decreased [None]
  - Dyspepsia [None]
  - Anaemia [None]
  - Nausea [None]
  - Full blood count decreased [None]
  - Abdominal discomfort [None]
  - Ulcer [None]

NARRATIVE: CASE EVENT DATE: 20180611
